FAERS Safety Report 9126740 (Version 1)
Quarter: 2013Q1

REPORT INFORMATION
  Report Type: Spontaneous
  Country: US (occurrence: US)
  Receive Date: 20130122
  Receipt Date: 20130122
  Transmission Date: 20140127
  Serious: No
  Sender: FDA-Public Use
  Company Number: US-PFIZER INC-2013022640

PATIENT
  Age: 81 Year
  Sex: Female
  Weight: 61.22 kg

DRUGS (9)
  1. VENLAFAXINE HYDROCHLORIDE [Suspect]
     Indication: HOT FLUSH
     Dosage: UNK
  2. CLOBETASOL PROPIONATE LOTION 0.05% [Concomitant]
     Indication: SKIN DISORDER
     Dosage: UNK
     Route: 061
  3. LIPITOR [Concomitant]
     Indication: ARTERIAL OCCLUSIVE DISEASE
     Dosage: UNK
  4. LEVOTHYROXINE [Concomitant]
     Indication: HYPOTHYROIDISM
     Dosage: UNK
  5. VITAMIN B-12 SL [Concomitant]
     Dosage: UNK
  6. CALCIUM [Concomitant]
     Dosage: UNK
  7. FISH OIL [Concomitant]
     Dosage: UNK
  8. VITAMIN D [Concomitant]
     Dosage: UNK
  9. ESTER-C [Concomitant]
     Dosage: UNK

REACTIONS (3)
  - Off label use [Unknown]
  - Somnolence [Unknown]
  - Incorrect dose administered [Unknown]
